FAERS Safety Report 14845659 (Version 1)
Quarter: 2018Q2

REPORT INFORMATION
  Report Type: Spontaneous
  Country: US (occurrence: US)
  Receive Date: 20180504
  Receipt Date: 20180504
  Transmission Date: 20180711
  Serious: No
  Sender: FDA-Public Use
  Company Number: US-PFIZER INC-2018184174

PATIENT
  Sex: Female

DRUGS (1)
  1. PREMARIN [Suspect]
     Active Substance: ESTROGENS, CONJUGATED
     Indication: UROGENITAL ATROPHY
     Dosage: 0.5 G, 2X/WEEK
     Route: 067

REACTIONS (3)
  - Mood altered [Unknown]
  - Nervousness [Unknown]
  - Anxiety [Unknown]
